FAERS Safety Report 7796710-9 (Version None)
Quarter: 2011Q3

REPORT INFORMATION
  Report Type: 
  Country: None (occurrence: None)
  Receive Date: 20110930
  Receipt Date: 20110919
  Transmission Date: 20111222
  Serious: Yes (Hospitalization, Other)
  Sender: FDA-Public Use
  Company Number: 2011MA013783

PATIENT
  Sex: Male
  Weight: 65.318 kg

DRUGS (39)
  1. FLUCONAZOLE [Concomitant]
  2. LISINOPRIL [Concomitant]
  3. PROGAF [Concomitant]
  4. ACETYLCYSTEINE [Concomitant]
  5. ACULAR [Concomitant]
  6. GEMFIBROZIL [Concomitant]
  7. ROXICET [Concomitant]
  8. HUMALOG [Concomitant]
  9. SODIUM BICARBONATE [Concomitant]
  10. TAMIFLU [Concomitant]
  11. TRIHEXYPHENDIL [Concomitant]
  12. DOCUSATE [Concomitant]
  13. METOCLOPRAMIDE [Suspect]
     Indication: GASTROOESOPHAGEAL REFLUX DISEASE
     Dosage: 10 MG;PO
     Route: 048
     Dates: start: 20061219, end: 20100101
  14. METOCLOPRAMIDE [Suspect]
     Indication: DIABETIC GASTROPARESIS
     Dosage: 10 MG;PO
     Route: 048
     Dates: start: 20061219, end: 20100101
  15. CIPROFLOXACIN [Concomitant]
  16. MYCOPHENOLATE MOFETIL [Concomitant]
  17. NEPHROCAPS [Concomitant]
  18. OFLOXACIN EYE DROPS [Concomitant]
  19. PREDNISONE [Concomitant]
  20. RENAGEL [Concomitant]
  21. SULFAMETHOXAZOLE [Concomitant]
  22. COZAAR [Concomitant]
  23. VALCYTE [Concomitant]
  24. VYTORIN [Concomitant]
  25. ANTIBIOTICS [Concomitant]
  26. MAGNESIUM OXIDE [Concomitant]
  27. AMOXICILLIN [Concomitant]
  28. BUPROPION HCL [Concomitant]
  29. LANTUS [Concomitant]
  30. PROMETHAZINE [Concomitant]
  31. PROTONIX [Concomitant]
  32. SUCRALFATE [Concomitant]
  33. SEPTRA [Concomitant]
  34. LEXAPRO [Concomitant]
  35. METOPROLOL TARTRATE [Concomitant]
  36. OXYCODONE HCL [Concomitant]
  37. ASPIRIN [Concomitant]
  38. MYCOPHENOLATE MOFETIL (CELLCEPT) [Concomitant]
  39. NYSTATIN [Concomitant]

REACTIONS (38)
  - DYSPHAGIA [None]
  - SEXUAL DYSFUNCTION [None]
  - EYE LASER SURGERY [None]
  - TOE AMPUTATION [None]
  - SQUAMOUS CELL CARCINOMA OF SKIN [None]
  - FATIGUE [None]
  - CELLULITIS [None]
  - GASTROOESOPHAGEAL REFLUX DISEASE [None]
  - LOCALISED INFECTION [None]
  - ABSCESS LIMB [None]
  - EXTRAPYRAMIDAL DISORDER [None]
  - ACUTE MYOCARDIAL INFARCTION [None]
  - RENAL IMPAIRMENT [None]
  - CHILLS [None]
  - OSTEOMYELITIS [None]
  - PAIN [None]
  - ILEUS [None]
  - TARDIVE DYSKINESIA [None]
  - BRUXISM [None]
  - VOMITING [None]
  - DEHYDRATION [None]
  - ABDOMINAL PAIN UPPER [None]
  - IMPAIRED GASTRIC EMPTYING [None]
  - POST PROCEDURAL COMPLICATION [None]
  - CHEST PAIN [None]
  - DIABETIC COMPLICATION [None]
  - NAUSEA [None]
  - ASTHENIA [None]
  - RENAL TRANSPLANT [None]
  - GANGRENE [None]
  - IMPAIRED HEALING [None]
  - GASTRITIS [None]
  - ANAEMIA [None]
  - CAROTID ARTERY STENOSIS [None]
  - SKIN ULCER [None]
  - WEIGHT DECREASED [None]
  - DIABETIC KETOACIDOSIS [None]
  - DIABETES MELLITUS INADEQUATE CONTROL [None]
